FAERS Safety Report 5854817-7 (Version None)
Quarter: 2008Q3

REPORT INFORMATION
  Report Type: 
  Country: None (occurrence: None)
  Receive Date: 20080822
  Receipt Date: 20080206
  Transmission Date: 20090109
  Serious: No
  Sender: FDA-Public Use
  Company Number: US-ABBOTT-08P-163-0437194-00

PATIENT
  Sex: Female
  Weight: 81.72 kg

DRUGS (8)
  1. SYNTHROID [Suspect]
     Indication: HYPOTHYROIDISM
     Route: 048
     Dates: start: 20071101, end: 20080202
  2. SYNTHROID [Suspect]
     Route: 048
     Dates: start: 20080202
  3. CALCIUM [Concomitant]
     Indication: DRUG USE FOR UNKNOWN INDICATION
     Route: 048
  4. MULTI-VITAMIN [Concomitant]
     Indication: DRUG USE FOR UNKNOWN INDICATION
     Route: 048
  5. ESTRADIOL INJ [Concomitant]
     Indication: MENOPAUSE
  6. OTC ANTIHISTAMINE [Concomitant]
     Indication: HYPERSENSITIVITY
     Route: 048
  7. VALIUM [Concomitant]
     Indication: INSOMNIA
     Route: 048
  8. ZOLPIDEM TARTRATE [Concomitant]
     Indication: INSOMNIA
     Route: 048

REACTIONS (3)
  - DRY MOUTH [None]
  - INSOMNIA [None]
  - TREMOR [None]
